FAERS Safety Report 20676590 (Version 1)
Quarter: 2022Q2

REPORT INFORMATION
  Report Type: Spontaneous
  Country: US (occurrence: US)
  Receive Date: 20220406
  Receipt Date: 20220406
  Transmission Date: 20220720
  Serious: No
  Sender: FDA-Public Use
  Company Number: US-drreddys-SPO/USA/22/0148415

PATIENT
  Age: 37 Year
  Sex: Female

DRUGS (2)
  1. ACCUTANE [Suspect]
     Active Substance: ISOTRETINOIN
     Indication: Product used for unknown indication
     Dosage: RMA ISSUE DATE: 17 FEBRUARY 2022 11:17:24 AM, 10 DECEMBER 2021 07:17:51 PM AND 12 NOVEMBER 2021 05:1
  2. ACCUTANE [Suspect]
     Active Substance: ISOTRETINOIN
     Dosage: RMA ISSUE DATE: 12 JANUARY 2022 06:15:34 PM

REACTIONS (2)
  - Epistaxis [Unknown]
  - Arthralgia [Unknown]
